FAERS Safety Report 21643798 (Version 1)
Quarter: 2022Q4

REPORT INFORMATION
  Report Type: Spontaneous
  Country: ET (occurrence: ET)
  Receive Date: 20221125
  Receipt Date: 20221125
  Transmission Date: 20230113
  Serious: Yes (Death, Life-Threatening, Other)
  Sender: FDA-Public Use
  Company Number: ET-PFIZER INC-PV202200108412

PATIENT
  Age: 39 Year
  Sex: Female

DRUGS (13)
  1. AZITHROMYCIN [Suspect]
     Active Substance: AZITHROMYCIN
     Indication: COVID-19
     Dosage: UNK
  2. DEXAMETHASONE [Suspect]
     Active Substance: DEXAMETHASONE
     Indication: COVID-19
     Dosage: 6 MG, DAILY
     Route: 042
  3. CEFTRIAXONE\SULBACTAM [Suspect]
     Active Substance: CEFTRIAXONE\SULBACTAM
     Indication: COVID-19
     Dosage: 1.5 MG, 2X/DAY
     Route: 042
  4. HEPARIN SODIUM [Suspect]
     Active Substance: HEPARIN SODIUM
     Indication: COVID-19
     Dosage: 17500, 2X/DAY
     Route: 058
  5. ASCORBIC ACID [Suspect]
     Active Substance: ASCORBIC ACID
     Indication: COVID-19
     Dosage: 200 MG, DAILY
     Route: 048
  6. ZINC [Suspect]
     Active Substance: ZINC
     Indication: COVID-19
     Dosage: 20 MG, DAILY
     Route: 048
  7. VANCOMYCIN [Concomitant]
     Active Substance: VANCOMYCIN
     Indication: Eye swelling
     Dosage: RENAL DOSE ADJUSTED
  8. AMPHOTERICIN B [Concomitant]
     Active Substance: AMPHOTERICIN B
     Indication: Rhinocerebral mucormycosis
     Dosage: 5 MG/KG, DAILY
     Route: 042
  9. INSULIN NOS [Concomitant]
     Active Substance: INSULIN NOS
     Indication: Rhinocerebral mucormycosis
  10. NPH INSULIN [Concomitant]
     Active Substance: INSULIN BEEF
     Indication: Diabetes mellitus management
     Dosage: 16/8, 2X/DAY
     Route: 058
  11. NPH INSULIN [Concomitant]
     Active Substance: INSULIN BEEF
     Dosage: 28/14
  12. MEROPENEM [Concomitant]
     Active Substance: MEROPENEM
     Indication: Rhinocerebral mucormycosis
     Dosage: 1 G, 3X/DAY
     Route: 042
  13. MEROPENEM [Concomitant]
     Active Substance: MEROPENEM
     Dosage: 2 G, 3X/DAY
     Route: 042

REACTIONS (2)
  - Off label use [Fatal]
  - Drug ineffective for unapproved indication [Fatal]
